FAERS Safety Report 23141514 (Version 2)
Quarter: 2024Q3

REPORT INFORMATION
  Report Type: Spontaneous
  Country: US (occurrence: US)
  Receive Date: 20231103
  Receipt Date: 20240808
  Transmission Date: 20241016
  Serious: No
  Sender: OTSUKA
  Company Number: US-OTSUKA-2023_025525

PATIENT
  Age: 41 Year
  Sex: Female
  Weight: 86.18 kg

DRUGS (2)
  1. ABILIFY ASIMTUFII [Suspect]
     Active Substance: ARIPIPRAZOLE
     Indication: Product used for unknown indication
     Dosage: 960 MG, EVERY 2 MONTHS (USED 1.5 INCH NEEDLE)
     Route: 030
     Dates: start: 20230927
  2. ABILIFY MAINTENA [Suspect]
     Active Substance: ARIPIPRAZOLE
     Indication: Product used for unknown indication
     Dosage: 400 MG, QM
     Route: 030

REACTIONS (3)
  - Injection site pain [Unknown]
  - Product use complaint [Unknown]
  - Therapy change [Unknown]

NARRATIVE: CASE EVENT DATE: 20230927
